FAERS Safety Report 15728576 (Version 6)
Quarter: 2019Q4

REPORT INFORMATION
  Report Type: Report from Study
  Country: JP (occurrence: JP)
  Receive Date: 20181217
  Receipt Date: 20191226
  Transmission Date: 20200122
  Serious: Yes (Hospitalization)
  Sender: FDA-Public Use
  Company Number: JP-ASTELLAS-2017JP024306

PATIENT
  Age: 46 Year
  Sex: Male

DRUGS (102)
  1. ELNEOPA NO.1 [Concomitant]
     Active Substance: AMINO ACIDS\DEXTROSE\ELECTROLYTES NOS\MINERALS\VITAMINS
     Indication: PRODUCT USED FOR UNKNOWN INDICATION
     Dosage: UNK UNK, UNKNOWN FREQ.
     Route: 042
     Dates: start: 20171205, end: 20171205
  2. PIPERACILLINA/TAZOBACTAM [Concomitant]
     Active Substance: PIPERACILLIN SODIUM\TAZOBACTAM SODIUM
     Indication: PRODUCT USED FOR UNKNOWN INDICATION
     Dosage: UNK UNK, UNKNOWN FREQ.
     Route: 042
     Dates: start: 20171209, end: 20171211
  3. POTASSIUM L ASPARTATE K [Concomitant]
     Active Substance: POTASSIUM ASPARTATE
     Indication: PRODUCT USED FOR UNKNOWN INDICATION
     Dosage: UNK UNK, UNKNOWN FREQ.
     Route: 042
     Dates: start: 20171211, end: 20180108
  4. METHYLPREDNISOLONE SODIUM SUCCINATE. [Concomitant]
     Active Substance: METHYLPREDNISOLONE SODIUM SUCCINATE
     Dosage: UNK UNK, UNKNOWN FREQ.
     Route: 042
     Dates: start: 20180417, end: 20180523
  5. NICORANDIL [Concomitant]
     Active Substance: NICORANDIL
     Dosage: UNK UNK, UNKNOWN FREQ.
     Route: 048
     Dates: start: 20191208
  6. OXYGEN. [Concomitant]
     Active Substance: OXYGEN
     Dosage: UNK UNK, UNKNOWN FREQ.
     Route: 045
     Dates: start: 20180124, end: 20180125
  7. ACETAMINOPHEN. [Concomitant]
     Active Substance: ACETAMINOPHEN
     Indication: PRODUCT USED FOR UNKNOWN INDICATION
     Dosage: UNK UNK, UNKNOWN FREQ.
     Route: 048
     Dates: start: 20180206, end: 20180208
  8. POLYGLOBIN [Concomitant]
     Active Substance: HUMAN IMMUNOGLOBULIN G
     Dosage: UNK UNK, UNKNOWN FREQ.
     Route: 042
     Dates: start: 20180503, end: 20180522
  9. POLYGLOBIN [Concomitant]
     Active Substance: HUMAN IMMUNOGLOBULIN G
     Dosage: UNK UNK, UNKNOWN FREQ.
     Route: 042
     Dates: start: 20191105, end: 20191106
  10. AMPHOTERICIN B. [Concomitant]
     Active Substance: AMPHOTERICIN B
     Indication: PRODUCT USED FOR UNKNOWN INDICATION
     Dosage: UNK UNK, UNKNOWN FREQ.
     Route: 042
     Dates: start: 20171211, end: 20171229
  11. NADIFLOXACIN [Concomitant]
     Active Substance: NADIFLOXACIN
     Indication: PRODUCT USED FOR UNKNOWN INDICATION
     Dosage: UNK UNK, UNKNOWN FREQ.
     Route: 062
     Dates: start: 20180716
  12. LOXONIN [Concomitant]
     Active Substance: LOXOPROFEN SODIUM
     Dosage: UNK UNK, UNKNOWN FREQ.
     Route: 062
     Dates: start: 20190913
  13. EDOXABAN TOSILATE [Concomitant]
     Active Substance: EDOXABAN TOSYLATE
     Dosage: UNK UNK, UNKNOWN FREQ.
     Route: 048
     Dates: start: 20191207
  14. ASP2215 [Suspect]
     Active Substance: GILTERITINIB
     Indication: ACUTE MYELOID LEUKAEMIA
     Route: 048
     Dates: start: 20171115, end: 20191113
  15. MAGNESIUM SULFATE. [Concomitant]
     Active Substance: MAGNESIUM SULFATE
     Indication: PRODUCT USED FOR UNKNOWN INDICATION
     Dosage: UNK UNK, UNKNOWN FREQ.
     Route: 042
     Dates: start: 20171005, end: 20180208
  16. FLUCONAZOLE. [Concomitant]
     Active Substance: FLUCONAZOLE
     Indication: PRODUCT USED FOR UNKNOWN INDICATION
     Dosage: UNK UNK, UNKNOWN FREQ.
     Route: 048
     Dates: start: 20171011, end: 20171211
  17. INTRALIPOS [Concomitant]
     Active Substance: SOYBEAN OIL
     Indication: PRODUCT USED FOR UNKNOWN INDICATION
     Dosage: UNK UNK, UNKNOWN FREQ.
     Route: 042
     Dates: start: 20171011, end: 20171129
  18. CEFEPIME HYDROCHLORIDE. [Concomitant]
     Active Substance: CEFEPIME HYDROCHLORIDE
     Indication: PRODUCT USED FOR UNKNOWN INDICATION
     Dosage: UNK UNK, UNKNOWN FREQ.
     Route: 042
     Dates: start: 20171206, end: 20171209
  19. CEFEPIME HYDROCHLORIDE. [Concomitant]
     Active Substance: CEFEPIME HYDROCHLORIDE
     Dosage: UNK UNK, UNKNOWN FREQ.
     Route: 042
     Dates: start: 20180205, end: 20180208
  20. ALCLOMETASONE DIPROPIONATE. [Concomitant]
     Active Substance: ALCLOMETASONE DIPROPIONATE
     Indication: PRODUCT USED FOR UNKNOWN INDICATION
     Dosage: UNK UNK, UNKNOWN FREQ.
     Route: 061
     Dates: start: 20171208, end: 20180309
  21. HYDROPHILIC [Concomitant]
     Indication: PRODUCT USED FOR UNKNOWN INDICATION
     Dosage: UNK UNK, UNKNOWN FREQ.
     Route: 061
     Dates: start: 20171226
  22. MICAFUNGIN SODIUM [Concomitant]
     Active Substance: MICAFUNGIN SODIUM
     Dosage: UNK UNK, UNKNOWN FREQ.
     Route: 042
     Dates: start: 20180511, end: 20180529
  23. MICAFUNGIN SODIUM [Concomitant]
     Active Substance: MICAFUNGIN SODIUM
     Dosage: UNK UNK, UNKNOWN FREQ.
     Route: 042
     Dates: start: 20180601, end: 20180622
  24. POLYGLOBIN [Concomitant]
     Active Substance: HUMAN IMMUNOGLOBULIN G
     Indication: PRODUCT USED FOR UNKNOWN INDICATION
     Dosage: UNK UNK, UNKNOWN FREQ.
     Route: 042
     Dates: start: 20180207, end: 20180207
  25. NERIZA [Concomitant]
     Indication: PRODUCT USED FOR UNKNOWN INDICATION
     Dosage: UNK UNK, UNKNOWN FREQ.
     Route: 061
     Dates: start: 20181227
  26. CALCIUM POLYSTYRENE SULFONATE [Concomitant]
     Active Substance: CALCIUM POLYSTYRENE SULFONATE
     Indication: PRODUCT USED FOR UNKNOWN INDICATION
     Dosage: UNK UNK, UNKNOWN FREQ.
     Route: 048
     Dates: start: 20190105, end: 20190205
  27. MAGNESIUM SULFATE. [Concomitant]
     Active Substance: MAGNESIUM SULFATE
     Dosage: UNK UNK, UNKNOWN FREQ.
     Route: 042
     Dates: start: 20180417, end: 20180613
  28. INSULIN HUMAN [Concomitant]
     Active Substance: INSULIN HUMAN
     Dosage: UNK UNK, UNKNOWN FREQ.
     Route: 042
     Dates: start: 20171214, end: 20180203
  29. SOLDEM 1 [Concomitant]
     Active Substance: DEXTROSE\SODIUM CHLORIDE\SODIUM LACTATE
     Indication: PRODUCT USED FOR UNKNOWN INDICATION
     Dosage: UNK UNK, UNKNOWN FREQ.
     Route: 042
     Dates: start: 20171122, end: 20171129
  30. AZUNOL [SODIUM GUALENATE] [Concomitant]
     Active Substance: SODIUM GUALENATE
     Indication: PRODUCT USED FOR UNKNOWN INDICATION
     Dosage: UNK UNK, UNKNOWN FREQ.
     Route: 049
     Dates: start: 20171207
  31. SOLDEM 3A [Concomitant]
     Active Substance: CARBOHYDRATES\POTASSIUM CHLORIDE\SODIUM CHLORIDE\SODIUM LACTATE
     Indication: PRODUCT USED FOR UNKNOWN INDICATION
     Dosage: UNK UNK, UNKNOWN FREQ.
     Route: 042
     Dates: start: 20171222, end: 20180112
  32. SOLDEM 3A [Concomitant]
     Active Substance: CARBOHYDRATES\POTASSIUM CHLORIDE\SODIUM CHLORIDE\SODIUM LACTATE
     Dosage: UNK UNK, UNKNOWN FREQ.
     Route: 042
     Dates: start: 20180416, end: 20180610
  33. NITROGLYCERINE [Concomitant]
     Active Substance: NITROGLYCERIN
     Indication: ANGINA PECTORIS
     Dosage: UNK UNK, UNKNOWN FREQ.
     Route: 048
     Dates: start: 20180106
  34. OXYGEN. [Concomitant]
     Active Substance: OXYGEN
     Dosage: UNK UNK, UNKNOWN FREQ.
     Route: 045
     Dates: start: 20180130, end: 20180130
  35. DEXALTIN [Concomitant]
     Active Substance: DEXAMETHASONE
     Indication: PRODUCT USED FOR UNKNOWN INDICATION
     Dosage: UNK UNK, UNKNOWN FREQ.
     Route: 062
     Dates: start: 20181114
  36. PROGRAF [Concomitant]
     Active Substance: TACROLIMUS
     Indication: PRODUCT USED FOR UNKNOWN INDICATION
     Dosage: UNK UNK, UNKNOWN FREQ.
     Route: 042
     Dates: start: 20170918, end: 20171120
  37. ELNEOPA NO.2 [Concomitant]
     Active Substance: AMINO ACIDS\DEXTROSE\ELECTROLYTES NOS\MINERALS\VITAMINS
     Indication: PRODUCT USED FOR UNKNOWN INDICATION
     Dosage: UNK UNK, UNKNOWN FREQ.
     Route: 042
     Dates: start: 20171031, end: 20171204
  38. SOLDEM 1 [Concomitant]
     Active Substance: DEXTROSE\SODIUM CHLORIDE\SODIUM LACTATE
     Dosage: UNK UNK, UNKNOWN FREQ.
     Route: 042
     Dates: start: 20171206, end: 20171213
  39. CEFEPIME HYDROCHLORIDE. [Concomitant]
     Active Substance: CEFEPIME HYDROCHLORIDE
     Dosage: UNK UNK, UNKNOWN FREQ.
     Route: 042
     Dates: start: 20180415, end: 20180417
  40. MEROPENEM TRIHYDRATE [Concomitant]
     Active Substance: MEROPENEM
     Indication: PRODUCT USED FOR UNKNOWN INDICATION
     Dosage: UNK UNK, UNKNOWN FREQ.
     Route: 042
     Dates: start: 20171211, end: 20171220
  41. CHLORPHENIRAMINE MALEATE. [Concomitant]
     Active Substance: CHLORPHENIRAMINE MALEATE
     Indication: PRODUCT USED FOR UNKNOWN INDICATION
     Dosage: UNK UNK, UNKNOWN FREQ.
     Route: 042
     Dates: start: 20171213, end: 20171213
  42. BFLUID [Concomitant]
     Active Substance: AMINO ACIDS\DEXTROSE\ELECTROLYTES NOS\VITAMINS
     Indication: PRODUCT USED FOR UNKNOWN INDICATION
     Dosage: UNK UNK, UNKNOWN FREQ.
     Route: 042
     Dates: start: 20171214, end: 20171221
  43. FUROSEMIDE. [Concomitant]
     Active Substance: FUROSEMIDE
     Indication: PRODUCT USED FOR UNKNOWN INDICATION
     Dosage: UNK UNK, UNKNOWN FREQ.
     Route: 042
     Dates: start: 20171215, end: 20171224
  44. GLYCERIN [GLYCEROL] [Concomitant]
     Indication: PRODUCT USED FOR UNKNOWN INDICATION
     Dosage: UNK UNK, UNKNOWN FREQ.
     Route: 065
     Dates: start: 20180107
  45. INDOMETACIN [Concomitant]
     Active Substance: INDOMETHACIN
     Indication: PRODUCT USED FOR UNKNOWN INDICATION
     Dosage: UNK UNK, UNKNOWN FREQ.
     Route: 061
     Dates: start: 20180527
  46. KETOPROFEN. [Concomitant]
     Active Substance: KETOPROFEN
     Indication: PRODUCT USED FOR UNKNOWN INDICATION
     Dosage: UNK UNK, UNKNOWN FREQ.
     Route: 061
     Dates: start: 20180610
  47. SODIUM PICOSULFATE [Concomitant]
     Active Substance: SODIUM PICOSULFATE
     Indication: PRODUCT USED FOR UNKNOWN INDICATION
     Dosage: UNK UNK, UNKNOWN FREQ.
     Route: 048
     Dates: start: 20181223
  48. HEPARINOID [Concomitant]
     Active Substance: CHONDROITIN SULFATE (BOVINE)
     Indication: PRODUCT USED FOR UNKNOWN INDICATION
     Dosage: UNK UNK, UNKNOWN FREQ.
     Route: 047
     Dates: start: 20171005
  49. TACROLIMUS. [Concomitant]
     Active Substance: TACROLIMUS
     Indication: PRODUCT USED FOR UNKNOWN INDICATION
     Dosage: UNK UNK, UNKNOWN FREQ.
     Route: 048
     Dates: start: 20171121, end: 20180415
  50. ACETAMINOPHEN. [Concomitant]
     Active Substance: ACETAMINOPHEN
     Indication: PRODUCT USED FOR UNKNOWN INDICATION
     Dosage: UNK UNK, UNKNOWN FREQ.
     Route: 042
     Dates: start: 20171211, end: 20171214
  51. POTASSIUM L ASPARTATE K [Concomitant]
     Active Substance: POTASSIUM ASPARTATE
     Dosage: UNK UNK, UNKNOWN FREQ.
     Route: 042
     Dates: start: 20180425, end: 20180426
  52. METHYLPREDNISOLONE SODIUM SUCCINATE. [Concomitant]
     Active Substance: METHYLPREDNISOLONE SODIUM SUCCINATE
     Indication: PRODUCT USED FOR UNKNOWN INDICATION
     Dosage: UNK UNK, UNKNOWN FREQ.
     Route: 042
     Dates: start: 20171213, end: 20180208
  53. NICORANDIL [Concomitant]
     Active Substance: NICORANDIL
     Indication: PRODUCT USED FOR UNKNOWN INDICATION
     Dosage: UNK UNK, UNKNOWN FREQ.
     Route: 048
     Dates: start: 20180107, end: 20180108
  54. ISOSORBIDE DINITRATE. [Concomitant]
     Active Substance: ISOSORBIDE DINITRATE
     Indication: PRODUCT USED FOR UNKNOWN INDICATION
     Dosage: UNK UNK, UNKNOWN FREQ.
     Route: 061
     Dates: start: 20180109
  55. NIFEDIPINE. [Concomitant]
     Active Substance: NIFEDIPINE
     Indication: PRODUCT USED FOR UNKNOWN INDICATION
     Dosage: UNK UNK, UNKNOWN FREQ.
     Route: 048
     Dates: start: 20180207
  56. MAALOXIL [Concomitant]
     Indication: PRODUCT USED FOR UNKNOWN INDICATION
     Dosage: UNK UNK, UNKNOWN FREQ.
     Route: 048
     Dates: start: 20180402
  57. ATOVAQUONE. [Concomitant]
     Active Substance: ATOVAQUONE
     Indication: PRODUCT USED FOR UNKNOWN INDICATION
     Dosage: UNK UNK, UNKNOWN FREQ.
     Route: 048
     Dates: start: 20190403
  58. LANSOPRAZOLE. [Concomitant]
     Active Substance: LANSOPRAZOLE
     Indication: PRODUCT USED FOR UNKNOWN INDICATION
     Dosage: UNK UNK, UNKNOWN FREQ.
     Route: 048
     Dates: start: 20170510
  59. MIYA-BM [Concomitant]
     Active Substance: CLOSTRIDIUM BUTYRICUM SPORES STRAIN M-55
     Indication: PRODUCT USED FOR UNKNOWN INDICATION
     Dosage: UNK UNK, UNKNOWN FREQ.
     Route: 048
     Dates: start: 20170918, end: 20180416
  60. FLUCONAZOLE. [Concomitant]
     Active Substance: FLUCONAZOLE
     Dosage: UNK UNK, UNKNOWN FREQ.
     Route: 048
     Dates: start: 20180209, end: 20180420
  61. HISHIPHAGENC [Concomitant]
     Active Substance: AMMONIUM GLYCYRRHIZATE\CYSTEINE HYDROCHLORIDE\GLYCINE
     Indication: PRODUCT USED FOR UNKNOWN INDICATION
     Dosage: UNK UNK, UNKNOWN FREQ.
     Route: 042
     Dates: start: 20171011, end: 20171203
  62. GLUCOSE [Concomitant]
     Active Substance: DEXTROSE
     Indication: PRODUCT USED FOR UNKNOWN INDICATION
     Dosage: UNK UNK, UNKNOWN FREQ.
     Route: 042
     Dates: start: 20171211, end: 20171229
  63. ISOSORBIDE MONONITRATE. [Concomitant]
     Active Substance: ISOSORBIDE MONONITRATE
     Indication: PRODUCT USED FOR UNKNOWN INDICATION
     Dosage: UNK UNK, UNKNOWN FREQ.
     Route: 048
     Dates: start: 20180108, end: 20180109
  64. BENIDIPINE HYDROCHLORIDE [Concomitant]
     Active Substance: BENIDIPINE HYDROCHLORIDE
     Indication: PRODUCT USED FOR UNKNOWN INDICATION
     Dosage: UNK UNK, UNKNOWN FREQ.
     Route: 048
     Dates: start: 20180130, end: 20180216
  65. POLYGLOBIN [Concomitant]
     Active Substance: HUMAN IMMUNOGLOBULIN G
     Dosage: UNK UNK, UNKNOWN FREQ.
     Route: 042
     Dates: start: 20191203, end: 20191203
  66. LOXONIN [Concomitant]
     Active Substance: LOXOPROFEN SODIUM
     Indication: PRODUCT USED FOR UNKNOWN INDICATION
     Dosage: UNK UNK, UNKNOWN FREQ.
     Route: 062
     Dates: start: 20180725, end: 20181205
  67. VORICONAZOLE. [Concomitant]
     Active Substance: VORICONAZOLE
     Indication: PRODUCT USED FOR UNKNOWN INDICATION
     Dosage: UNK UNK, UNKNOWN FREQ.
     Route: 048
     Dates: start: 20181211
  68. MAGNESIUM OXIDE. [Concomitant]
     Active Substance: MAGNESIUM OXIDE
     Indication: PRODUCT USED FOR UNKNOWN INDICATION
     Dosage: UNK UNK, UNKNOWN FREQ.
     Route: 048
     Dates: start: 20181217
  69. LIDOCAINE HYDROCHLORIDE. [Concomitant]
     Active Substance: LIDOCAINE HYDROCHLORIDE
     Indication: PRODUCT USED FOR UNKNOWN INDICATION
     Dosage: UNK UNK, UNKNOWN FREQ.
     Route: 062
     Dates: start: 20190104
  70. CALCIUM POLYSTYRENE SULFONATE [Concomitant]
     Active Substance: CALCIUM POLYSTYRENE SULFONATE
     Dosage: UNK UNK, UNKNOWN FREQ.
     Route: 048
     Dates: start: 20190307
  71. LATANOPROST. [Concomitant]
     Active Substance: LATANOPROST
     Indication: PRODUCT USED FOR UNKNOWN INDICATION
     Dosage: UNK UNK, UNKNOWN FREQ.
     Route: 047
     Dates: start: 20190423, end: 20191126
  72. EDOXABAN TOSILATE [Concomitant]
     Active Substance: EDOXABAN TOSYLATE
     Indication: PRODUCT USED FOR UNKNOWN INDICATION
     Dosage: UNK UNK, UNKNOWN FREQ.
     Route: 048
     Dates: start: 20190425, end: 20191206
  73. CYMBALTA [Concomitant]
     Active Substance: DULOXETINE HYDROCHLORIDE
     Indication: PRODUCT USED FOR UNKNOWN INDICATION
     Dosage: UNK UNK, UNKNOWN FREQ.
     Route: 048
     Dates: start: 20190710
  74. URSODEOXYCHOLIC ACID [Concomitant]
     Active Substance: URSODIOL
     Indication: PRODUCT USED FOR UNKNOWN INDICATION
     Dosage: UNK UNK, UNKNOWN FREQ.
     Route: 048
     Dates: start: 20170912
  75. PENTAMIDINE ISETHIONATE. [Concomitant]
     Active Substance: PENTAMIDINE ISETHIONATE
     Indication: PRODUCT USED FOR UNKNOWN INDICATION
     Dosage: UNK UNK, UNKNOWN FREQ.
     Route: 055
     Dates: start: 20171024, end: 20171211
  76. PENTAMIDINE ISETHIONATE. [Concomitant]
     Active Substance: PENTAMIDINE ISETHIONATE
     Dosage: UNK UNK, UNKNOWN FREQ.
     Route: 055
     Dates: start: 20180402, end: 20181001
  77. GLYCYRON [DL-METHIONINE;GLYCINE;GLYCYRRHIZIC ACID, AMMONIUM SALT] [Concomitant]
     Indication: PRODUCT USED FOR UNKNOWN INDICATION
     Dosage: UNK UNK, UNKNOWN FREQ.
     Route: 048
     Dates: start: 20171204, end: 20180704
  78. TEICOPLANIN [Concomitant]
     Active Substance: TEICOPLANIN
     Indication: PRODUCT USED FOR UNKNOWN INDICATION
     Dosage: UNK UNK, UNKNOWN FREQ.
     Route: 042
     Dates: start: 20171210, end: 20171223
  79. TEICOPLANIN [Concomitant]
     Active Substance: TEICOPLANIN
     Dosage: UNK UNK, UNKNOWN FREQ.
     Route: 042
     Dates: start: 20180417, end: 20180501
  80. DAIPHEN [Concomitant]
     Active Substance: SULFAMETHOXAZOLE\TRIMETHOPRIM
     Indication: PRODUCT USED FOR UNKNOWN INDICATION
     Dosage: UNK UNK, UNKNOWN FREQ.
     Route: 048
     Dates: start: 20171212, end: 20180326
  81. HYDROCORTISONE SODIUM SUCCINATE [Concomitant]
     Active Substance: HYDROCORTISONE SODIUM SUCCINATE
     Indication: PRODUCT USED FOR UNKNOWN INDICATION
     Dosage: UNK UNK, UNKNOWN FREQ.
     Route: 042
     Dates: start: 20171212, end: 20171213
  82. FUROSEMIDE. [Concomitant]
     Active Substance: FUROSEMIDE
     Dosage: UNK UNK, UNKNOWN FREQ.
     Route: 042
     Dates: start: 20180502, end: 20180605
  83. MICAFUNGIN SODIUM [Concomitant]
     Active Substance: MICAFUNGIN SODIUM
     Indication: PRODUCT USED FOR UNKNOWN INDICATION
     Dosage: UNK UNK, UNKNOWN FREQ.
     Route: 042
     Dates: start: 20171230, end: 20180208
  84. MICAFUNGIN SODIUM [Concomitant]
     Active Substance: MICAFUNGIN SODIUM
     Dosage: UNK UNK, UNKNOWN FREQ.
     Route: 042
     Dates: start: 20180417, end: 20180423
  85. NICORANDIL [Concomitant]
     Active Substance: NICORANDIL
     Dosage: UNK UNK, UNKNOWN FREQ.
     Route: 048
     Dates: start: 20180204, end: 20191205
  86. OXYGEN. [Concomitant]
     Active Substance: OXYGEN
     Indication: PRODUCT USED FOR UNKNOWN INDICATION
     Dosage: UNK UNK, UNKNOWN FREQ.
     Route: 045
     Dates: start: 20180107, end: 20180108
  87. AMPHOTERICIN B. [Concomitant]
     Active Substance: AMPHOTERICIN B
     Dosage: UNK UNK, UNKNOWN FREQ.
     Route: 042
     Dates: start: 20180425, end: 20180510
  88. PREDNISOLONE. [Concomitant]
     Active Substance: PREDNISOLONE
     Dosage: UNK UNK, UNKNOWN FREQ.
     Route: 065
     Dates: start: 20191209
  89. FEBUXOSTAT. [Concomitant]
     Active Substance: FEBUXOSTAT
     Indication: PRODUCT USED FOR UNKNOWN INDICATION
     Dosage: UNK UNK, UNKNOWN FREQ.
     Route: 048
     Dates: start: 20180811
  90. RINDERON [BETAMETHASONE] [Concomitant]
     Active Substance: BETAMETHASONE
     Indication: PRODUCT USED FOR UNKNOWN INDICATION
     Dosage: UNK UNK, UNKNOWN FREQ.
     Route: 065
     Dates: start: 20181114
  91. ACICLOVIR [Concomitant]
     Active Substance: ACYCLOVIR
     Indication: PRODUCT USED FOR UNKNOWN INDICATION
     Dosage: UNK UNK, UNKNOWN FREQ.
     Route: 048
     Dates: start: 20171020
  92. INSULIN HUMAN [Concomitant]
     Active Substance: INSULIN HUMAN
     Indication: PRODUCT USED FOR UNKNOWN INDICATION
     Dosage: UNK UNK, UNKNOWN FREQ.
     Route: 042
     Dates: start: 20171031, end: 20171205
  93. SOLDEM 1 [Concomitant]
     Active Substance: DEXTROSE\SODIUM CHLORIDE\SODIUM LACTATE
     Dosage: UNK UNK, UNKNOWN FREQ.
     Route: 042
     Dates: start: 20171231, end: 20180208
  94. SOLDEM 1 [Concomitant]
     Active Substance: DEXTROSE\SODIUM CHLORIDE\SODIUM LACTATE
     Dosage: UNK UNK, UNKNOWN FREQ.
     Route: 042
     Dates: start: 20180416, end: 20180614
  95. CEFEPIME HYDROCHLORIDE. [Concomitant]
     Active Substance: CEFEPIME HYDROCHLORIDE
     Dosage: UNK UNK, UNKNOWN FREQ.
     Route: 042
     Dates: start: 20171221, end: 20180117
  96. MEROPENEM TRIHYDRATE [Concomitant]
     Active Substance: MEROPENEM
     Dosage: UNK UNK, UNKNOWN FREQ.
     Route: 042
     Dates: start: 20180417, end: 20180502
  97. ACETAMINOPHEN. [Concomitant]
     Active Substance: ACETAMINOPHEN
     Dosage: UNK UNK, UNKNOWN FREQ.
     Route: 042
     Dates: start: 20180418, end: 20180418
  98. PLATELETS [Concomitant]
     Active Substance: HUMAN PLATELET, ALLOGENIC
     Indication: PRODUCT USED FOR UNKNOWN INDICATION
     Dosage: UNK UNK, UNKNOWN FREQ.
     Route: 042
     Dates: start: 20171213, end: 20171213
  99. LEVOFLOXACIN HEMIHYDRATE [Concomitant]
     Active Substance: LEVOFLOXACIN
     Indication: PRODUCT USED FOR UNKNOWN INDICATION
     Dosage: UNK UNK, UNKNOWN FREQ.
     Route: 048
     Dates: start: 20180209, end: 20180305
  100. PREDNISOLONE. [Concomitant]
     Active Substance: PREDNISOLONE
     Indication: PRODUCT USED FOR UNKNOWN INDICATION
     Dosage: UNK UNK, UNKNOWN FREQ.
     Route: 048
     Dates: start: 20180204, end: 20180319
  101. PREDNISOLONE. [Concomitant]
     Active Substance: PREDNISOLONE
     Dosage: UNK UNK, UNKNOWN FREQ.
     Route: 048
     Dates: start: 20180528, end: 20191205
  102. LOXOPROFEN SODIUM [Concomitant]
     Active Substance: LOXOPROFEN SODIUM
     Indication: PRODUCT USED FOR UNKNOWN INDICATION
     Dosage: UNK UNK, UNKNOWN FREQ.
     Route: 048
     Dates: start: 20191101, end: 20191108

REACTIONS (4)
  - Pneumonia [Recovered/Resolved]
  - Pneumonia [Recovering/Resolving]
  - Prinzmetal angina [Recovering/Resolving]
  - Femur fracture [Recovering/Resolving]

NARRATIVE: CASE EVENT DATE: 20171205
